FAERS Safety Report 24736083 (Version 1)
Quarter: 2024Q4

REPORT INFORMATION
  Report Type: Spontaneous
  Country: JP (occurrence: JP)
  Receive Date: 20241216
  Receipt Date: 20241216
  Transmission Date: 20250115
  Serious: Yes (Hospitalization, Other)
  Sender: AMGEN
  Company Number: JP-AMGEN-JPNSP2024243120

PATIENT
  Age: 14 Year
  Sex: Female
  Weight: 46.9 kg

DRUGS (12)
  1. BLINATUMOMAB [Suspect]
     Active Substance: BLINATUMOMAB
     Indication: B-cell type acute leukaemia
     Dosage: UNK (TWO CYCLES)
     Route: 040
  2. BLINATUMOMAB [Suspect]
     Active Substance: BLINATUMOMAB
     Dosage: 9 MICROGRAM, QD (FIRST CYCLE: ON DAYS 1-7)
     Route: 040
  3. BLINATUMOMAB [Suspect]
     Active Substance: BLINATUMOMAB
     Dosage: 28 MICROGRAM, QD (FIRST CYCLE: ON DAYS 8-28)
     Route: 040
  4. BLINATUMOMAB [Suspect]
     Active Substance: BLINATUMOMAB
     Dosage: 28 MICROGRAM, QD (FOR ALL 28 DAYS) (SECOND CYCLE)
     Route: 040
  5. CYCLOPHOSPHAMIDE\DEXAMETHASONE\DOXORUBICIN\VINCRISTINE [Concomitant]
     Active Substance: CYCLOPHOSPHAMIDE\DEXAMETHASONE\DOXORUBICIN\VINCRISTINE
     Indication: B-cell type acute leukaemia
     Route: 065
  6. DASATINIB [Concomitant]
     Active Substance: DASATINIB
     Indication: B-cell type acute leukaemia
     Route: 065
  7. METHOTREXATE [Concomitant]
     Active Substance: METHOTREXATE
     Indication: B-cell type acute leukaemia
     Dosage: UNK (FIRST CYCLE: ON DAYS 7, 14, 21, AND 30)
     Route: 029
  8. METHOTREXATE [Concomitant]
     Active Substance: METHOTREXATE
     Dosage: UNK (SECOND CYCLE: ON DAYS 1, 15, AND 30)
     Route: 029
  9. CYTARABINE [Concomitant]
     Active Substance: CYTARABINE
     Indication: B-cell type acute leukaemia
     Dosage: UNK (FIRST CYCLE: ON DAYS 7, 14, 21, AND 30)
     Route: 029
  10. CYTARABINE [Concomitant]
     Active Substance: CYTARABINE
     Dosage: UNK (SECOND CYCLE: ON DAYS 1, 15, AND 30)
     Route: 029
  11. PREDNISOLONE [Concomitant]
     Active Substance: PREDNISOLONE
     Indication: B-cell type acute leukaemia
     Dosage: UNK (FIRST CYCLE: ON DAYS 7, 14, 21, AND 30)
     Route: 029
  12. PREDNISOLONE [Concomitant]
     Active Substance: PREDNISOLONE
     Dosage: UNK (SECOND CYCLE: ON DAYS 1, 15, AND 30)
     Route: 029

REACTIONS (4)
  - Acute lymphocytic leukaemia recurrent [Unknown]
  - Central nervous system leukaemia [Unknown]
  - VIth nerve paralysis [Unknown]
  - Headache [Unknown]
